FAERS Safety Report 5416417-2 (Version None)
Quarter: 2007Q3

REPORT INFORMATION
  Report Type: 
  Country: None (occurrence: None)
  Receive Date: 20070816
  Receipt Date: 20070813
  Transmission Date: 20080115
  Serious: Yes (Death)
  Sender: FDA-Public Use
  Company Number: BR-JNJFOC-20070802547

PATIENT
  Sex: Male
  Weight: 53 kg

DRUGS (9)
  1. TMC114 [Suspect]
     Route: 048
  2. TMC114 [Suspect]
     Indication: HIV INFECTION
     Route: 048
  3. RITONAVIR [Suspect]
     Indication: HIV INFECTION
     Route: 048
  4. TENOFOVIR [Concomitant]
     Indication: HIV INFECTION
     Route: 048
  5. DIDANOSINE [Concomitant]
     Indication: HIV INFECTION
     Route: 048
  6. SULFAMETHOXAZOLE [Concomitant]
     Indication: INFECTION PROPHYLAXIS
     Dosage: STARTED PRE-TRIAL
     Route: 048
  7. FORMOTEROL FUMARATE [Concomitant]
     Indication: EMPHYSEMA
     Route: 055
  8. BUDENOSIDE [Concomitant]
     Indication: EMPHYSEMA
     Route: 055
  9. SIBUTRAMINE [Concomitant]
     Indication: DEPRESSION
     Route: 048

REACTIONS (1)
  - DEATH [None]
